FAERS Safety Report 9112881 (Version 3)
Quarter: 2013Q2

REPORT INFORMATION
  Report Type: Report from Study
  Country: DE (occurrence: DE)
  Receive Date: 20130211
  Receipt Date: 20130501
  Transmission Date: 20140414
  Serious: Yes (Hospitalization)
  Sender: FDA-Public Use
  Company Number: DE-ROCHE-1189283

PATIENT
  Age: 67 Year
  Sex: Male
  Weight: 57.6 kg

DRUGS (3)
  1. RITUXIMAB [Suspect]
     Indication: MANTLE CELL LYMPHOMA
     Route: 065
     Dates: start: 20121217, end: 20130107
  2. ARA-C [Suspect]
     Indication: MANTLE CELL LYMPHOMA
     Route: 065
     Dates: start: 20121218, end: 20130109
  3. DEXAMETHASONE [Suspect]
     Indication: MANTLE CELL LYMPHOMA
     Route: 065
     Dates: start: 20121217, end: 20130110

REACTIONS (1)
  - Peripheral arterial occlusive disease [Recovered/Resolved]
